FAERS Safety Report 17122201 (Version 4)
Quarter: 2020Q1

REPORT INFORMATION
  Report Type: Spontaneous
  Country: US (occurrence: US)
  Receive Date: 20191206
  Receipt Date: 20200123
  Transmission Date: 20200409
  Serious: No
  Sender: FDA-Public Use
  Company Number: US-PFIZER INC-2018055247

PATIENT
  Age: 53 Year
  Sex: Male
  Weight: 88.18 kg

DRUGS (3)
  1. HYDRALAZINE [Concomitant]
     Active Substance: HYDRALAZINE HYDROCHLORIDE
     Indication: BLOOD PRESSURE MANAGEMENT
     Dosage: 25 MG, 1X/DAY
     Route: 048
  2. RAPAMUNE [Suspect]
     Active Substance: SIROLIMUS
     Indication: LIVER TRANSPLANT
     Dosage: 1 MG, 4X/DAY
     Route: 048
     Dates: start: 2018
  3. RAPAMUNE [Suspect]
     Active Substance: SIROLIMUS
     Indication: IMMUNOSUPPRESSANT DRUG THERAPY

REACTIONS (5)
  - Accident at work [Unknown]
  - Off label use [Unknown]
  - Product use in unapproved indication [Unknown]
  - Memory impairment [Unknown]
  - Concussion [Unknown]

NARRATIVE: CASE EVENT DATE: 2018
